FAERS Safety Report 9638694 (Version 1)
Quarter: 2013Q4

REPORT INFORMATION
  Report Type: Spontaneous
  Country: US (occurrence: None)
  Receive Date: 20131018
  Receipt Date: 20131018
  Transmission Date: 20140711
  Serious: Yes (Other)
  Sender: FDA-Public Use
  Company Number: US-ZYDUS-002326

PATIENT
  Age: 73 Year
  Sex: Male

DRUGS (1)
  1. AZATHIOPRINE (AZATHIOPRINE) [Suspect]
     Indication: POLYCHONDRITIS
     Dosage: 100.00-MG- 1.0DAYS

REACTIONS (6)
  - Renal failure acute [None]
  - Thrombocytopenia [None]
  - Hepatic enzyme increased [None]
  - Proteinuria [None]
  - Haematuria [None]
  - Pyrexia [None]
